FAERS Safety Report 4730764-9 (Version None)
Quarter: 2005Q3

REPORT INFORMATION
  Report Type: 
  Country: None (occurrence: None)
  Receive Date: 20050725
  Receipt Date: 20050518
  Transmission Date: 20060218
  Serious: No
  Sender: FDA-Public Use
  Company Number: USA050598425

PATIENT
  Age: 10 Year
  Sex: Male
  Weight: 32 kg

DRUGS (3)
  1. STRATTERA [Suspect]
     Indication: ATTENTION DEFICIT/HYPERACTIVITY DISORDER
     Dosage: 25 MG DAY
     Dates: start: 20040801
  2. CLONIDINE [Concomitant]
  3. TENEX (GUAFACINE HYDROCHLORIDE) [Concomitant]

REACTIONS (2)
  - ANOREXIA [None]
  - MUSCLE TWITCHING [None]
